FAERS Safety Report 5046168-8 (Version None)
Quarter: 2006Q2

REPORT INFORMATION
  Report Type: 
  Country: None (occurrence: None)
  Receive Date: 20060629
  Receipt Date: 20060620
  Transmission Date: 20061013
  Serious: Yes (Hospitalization, Other)
  Sender: FDA-Public Use
  Company Number: 2006-03-1428

PATIENT
  Age: 66 Year
  Sex: Female
  Weight: 85.2762 kg

DRUGS (3)
  1. PEG-INTRON [Suspect]
     Indication: HEPATITIS C
     Dosage: 150 MCG QWK SUBCUTANEOUS
     Route: 058
     Dates: start: 20040116, end: 20040719
  2. RIBAVIRIN [Suspect]
     Indication: HEPATITIS C
     Dosage: 600 MG BID ORAL
     Route: 048
     Dates: start: 20040116, end: 20040719
  3. ZOLOFT [Concomitant]

REACTIONS (15)
  - ALOPECIA [None]
  - CONFUSIONAL STATE [None]
  - DEATH OF SPOUSE [None]
  - DEMENTIA [None]
  - DENTAL CARIES [None]
  - DEPRESSION [None]
  - DISORIENTATION [None]
  - HOSTILITY [None]
  - LOOSE TOOTH [None]
  - MENTAL DISORDER [None]
  - MENTAL STATUS CHANGES [None]
  - PARANOIA [None]
  - TEARFULNESS [None]
  - TOOTHACHE [None]
  - WEIGHT DECREASED [None]
